FAERS Safety Report 25616287 (Version 3)
Quarter: 2025Q4

REPORT INFORMATION
  Report Type: Spontaneous
  Country: GB (occurrence: GB)
  Receive Date: 20250729
  Receipt Date: 20251111
  Transmission Date: 20260118
  Serious: Yes (Hospitalization, Other)
  Sender: AMGEN
  Company Number: GB-PFIZER INC-PV202500071180

PATIENT
  Age: 80 Year
  Sex: Female

DRUGS (2)
  1. ENBREL [Suspect]
     Active Substance: ETANERCEPT
     Indication: Rheumatoid arthritis
     Dosage: 25 MG E4D(EVERY 4 DAYS)
     Route: 058
  2. ENBREL [Suspect]
     Active Substance: ETANERCEPT
     Dosage: 25 MG E4D(EVERY 4 DAYS)
     Route: 058
     Dates: start: 20250723, end: 2025

REACTIONS (4)
  - Gangrene [Unknown]
  - Weight decreased [Unknown]
  - Peripheral coldness [Unknown]
  - Raynaud^s phenomenon [Unknown]
